FAERS Safety Report 23183264 (Version 1)
Quarter: 2023Q4

REPORT INFORMATION
  Report Type: Spontaneous
  Country: AU (occurrence: AU)
  Receive Date: 20231114
  Receipt Date: 20231114
  Transmission Date: 20240110
  Serious: Yes (Hospitalization, Other)
  Sender: FDA-Public Use
  Company Number: AU-ELI_LILLY_AND_COMPANY-AU202311004175

PATIENT
  Sex: Female

DRUGS (2)
  1. ABEMACICLIB [Suspect]
     Active Substance: ABEMACICLIB
     Indication: Breast cancer metastatic
     Dosage: CYCLE 1, 150 MG, BID
     Route: 065
  2. ABEMACICLIB [Suspect]
     Active Substance: ABEMACICLIB
     Dosage: CYCLE 2 AND 3, 100 MG, BID
     Route: 065

REACTIONS (4)
  - Acute kidney injury [Unknown]
  - Cardiac failure [Unknown]
  - Diarrhoea [Unknown]
  - Dyspnoea [Unknown]
